FAERS Safety Report 7711955-1 (Version None)
Quarter: 2011Q3

REPORT INFORMATION
  Report Type: 
  Country: None (occurrence: None)
  Receive Date: 20110826
  Receipt Date: 20110822
  Transmission Date: 20111222
  Serious: Yes (Other)
  Sender: FDA-Public Use
  Company Number: NZ-SANOFI-AVENTIS-2011SA053530

PATIENT
  Age: 56 Year
  Sex: Female

DRUGS (4)
  1. PREDNISONE [Concomitant]
  2. SULFASALAZINE [Concomitant]
  3. ACETAMINOPHEN [Concomitant]
  4. ARAVA [Suspect]
     Route: 048
     Dates: start: 20110302

REACTIONS (3)
  - RASH [None]
  - WHITE BLOOD CELL COUNT INCREASED [None]
  - C-REACTIVE PROTEIN INCREASED [None]
